FAERS Safety Report 13032817 (Version 1)
Quarter: 2016Q4

REPORT INFORMATION
  Report Type: Spontaneous
  Country: US (occurrence: US)
  Receive Date: 20161215
  Receipt Date: 20161215
  Transmission Date: 20170207
  Serious: No
  Sender: FDA-Public Use
  Company Number: US-ACTELION-A-US2016-142991

PATIENT
  Age: 51 Year
  Sex: Female

DRUGS (9)
  1. OPSUMIT [Suspect]
     Active Substance: MACITENTAN
     Indication: PULMONARY ARTERIAL HYPERTENSION
     Dosage: 10 MG, UNK
     Route: 048
     Dates: start: 20151119
  2. ADCIRCA [Concomitant]
     Active Substance: TADALAFIL
  3. RESTASIS [Concomitant]
     Active Substance: CYCLOSPORINE
  4. VELETRI [Suspect]
     Active Substance: EPOPROSTENOL
     Indication: PULMONARY ARTERIAL HYPERTENSION
     Dosage: 22 NG/KG, PER MIN
     Route: 042
     Dates: start: 20160624
  5. IMURAN [Concomitant]
     Active Substance: AZATHIOPRINE
  6. POTASSIUM [Concomitant]
     Active Substance: POTASSIUM
  7. ALDACTONE [Concomitant]
     Active Substance: SPIRONOLACTONE
  8. VELETRI [Suspect]
     Active Substance: EPOPROSTENOL
     Dosage: 20 NG/KG, PER MIN
     Route: 042
  9. LASIX [Concomitant]
     Active Substance: FUROSEMIDE

REACTIONS (5)
  - Therapy non-responder [Unknown]
  - Fluid retention [Unknown]
  - Peripheral swelling [Unknown]
  - Condition aggravated [Unknown]
  - Dyspnoea [Not Recovered/Not Resolved]

NARRATIVE: CASE EVENT DATE: 20160921
